FAERS Safety Report 5345843-5 (Version None)
Quarter: 2007Q2

REPORT INFORMATION
  Report Type: 
  Country: None (occurrence: None)
  Receive Date: 20070605
  Receipt Date: 20070528
  Transmission Date: 20071010
  Serious: Yes (Other)
  Sender: FDA-Public Use
  Company Number: CA-ASTRAZENECA-2003UW14169

PATIENT
  Age: 10486 Day
  Sex: Female

DRUGS (12)
  1. SEROQUEL [Suspect]
     Indication: BIPOLAR I DISORDER
     Route: 048
     Dates: start: 20021120, end: 20021204
  2. SEROQUEL [Suspect]
     Route: 048
     Dates: start: 20021204
  3. ATIVAN [Concomitant]
  4. POLYVINYL ALCOHOL OPHTHALMIC [Concomitant]
  5. HALOPERIDOL [Concomitant]
     Route: 030
     Dates: start: 20021120
  6. HALOPERIDOL [Concomitant]
     Route: 048
     Dates: start: 20021120
  7. SULFACETAMIDE SODIUM [Concomitant]
  8. UNSPECIFIED [Concomitant]
  9. MARIJUANA [Concomitant]
  10. TEMAZEPAM [Concomitant]
     Dates: start: 20021120, end: 20021128
  11. SODIUM SULFACETAMIDE [Concomitant]
     Dosage: 10% 1 DROP QID
     Dates: start: 20021122, end: 20021126
  12. POLYVINYL ALCOHOL [Concomitant]
     Dosage: 1.4% 1 DROP TID, PRN
     Dates: start: 20021102, end: 20021125

REACTIONS (3)
  - LEUKOPENIA [None]
  - NEUTROPENIA [None]
  - PLATELET PRODUCTION DECREASED [None]
